FAERS Safety Report 7510929-3 (Version None)
Quarter: 2011Q2

REPORT INFORMATION
  Report Type: 
  Country: None (occurrence: None)
  Receive Date: 20110531
  Receipt Date: 20070228
  Transmission Date: 20111010
  Serious: No
  Sender: FDA-Public Use
  Company Number: 2007BI004965

PATIENT
  Sex: Male

DRUGS (1)
  1. TYSABRI [Suspect]
     Indication: MULTIPLE SCLEROSIS
     Route: 042
     Dates: start: 20070228

REACTIONS (4)
  - CHEST PAIN [None]
  - ATTENTION-SEEKING BEHAVIOUR [None]
  - PAIN IN EXTREMITY [None]
  - COGNITIVE DISORDER [None]
